FAERS Safety Report 9450361 (Version 1)
Quarter: 2013Q3

REPORT INFORMATION
  Report Type: Spontaneous
  Country: US (occurrence: US)
  Receive Date: 20130809
  Receipt Date: 20130809
  Transmission Date: 20140515
  Serious: Yes (Other)
  Sender: FDA-Public Use
  Company Number: US-BAYER-2013-095315

PATIENT
  Sex: Male

DRUGS (5)
  1. BAYER GENUINE ASPIRIN ORIGINAL STRENGTH [Suspect]
  2. XANAX [Concomitant]
  3. PROTONIX [Concomitant]
  4. CELEXA [Concomitant]
  5. TRICOR [Concomitant]

REACTIONS (1)
  - Ulcer [None]
